FAERS Safety Report 6208736-7 (Version None)
Quarter: 2009Q2

REPORT INFORMATION
  Report Type: 
  Country: None (occurrence: None)
  Receive Date: 20090529
  Receipt Date: 20090518
  Transmission Date: 20091009
  Serious: Yes (Life-Threatening, Hospitalization)
  Sender: FDA-Public Use
  Company Number: FR-WYE-H09452809

PATIENT
  Sex: Male

DRUGS (10)
  1. CORDARONE [Suspect]
     Indication: TACHYCARDIA
     Route: 048
     Dates: start: 20080601, end: 20090301
  2. ASPEGIC 1000 [Concomitant]
  3. TAHOR [Concomitant]
     Dosage: UNSPECIFIED
     Route: 048
  4. FORLAX [Concomitant]
     Dosage: UNSPECIFIED
     Route: 048
  5. INIPOMP [Concomitant]
  6. XATRAL [Concomitant]
     Dosage: UNSPECIFIED
     Route: 048
  7. LORAZEPAM [Concomitant]
     Dosage: UNSPECIFIED
     Route: 048
  8. CALCIPARINE [Concomitant]
     Dosage: UNSPECIFIED
     Route: 058
  9. DIGOXIN [Interacting]
     Indication: TACHYCARDIA
     Route: 048
     Dates: start: 20090201, end: 20090301
  10. LASIX [Concomitant]

REACTIONS (3)
  - BRADYCARDIA [None]
  - DRUG INTERACTION [None]
  - TROPONIN INCREASED [None]
